FAERS Safety Report 5952641-8 (Version None)
Quarter: 2008Q4

REPORT INFORMATION
  Report Type: 
  Country: None (occurrence: None)
  Receive Date: 20081029
  Receipt Date: 20080811
  Transmission Date: 20090506
  Serious: Yes (Hospitalization)
  Sender: FDA-Public Use
  Company Number: 175754USA

PATIENT
  Age: 61 Year
  Sex: Male

DRUGS (1)
  1. ZOLPIDEM TARTRATE [Suspect]
     Dosage: TOOK 7 TABLETS, ORAL
     Route: 048
     Dates: start: 20080101

REACTIONS (3)
  - GAIT DISTURBANCE [None]
  - MEDICATION ERROR [None]
  - SOMNOLENCE [None]
